FAERS Safety Report 5143531-1 (Version None)
Quarter: 2006Q4

REPORT INFORMATION
  Report Type: 
  Country: None (occurrence: None)
  Receive Date: 20061101
  Receipt Date: 20061101
  Transmission Date: 20070319
  Serious: Yes (Death)
  Sender: FDA-Public Use
  Company Number: None

PATIENT
  Age: 31 Year
  Sex: Male
  Weight: 90.7194 kg

DRUGS (2)
  1. WELLBUTRIN XL [Suspect]
     Indication: ATTENTION DEFICIT/HYPERACTIVITY DISORDER
     Dosage: 150 MG QD PO INC. TO 300MG AFTER 1 WEEK QD PO
     Route: 048
     Dates: start: 20060926, end: 20061013
  2. WELLBUTRIN XL [Suspect]
     Indication: INTERMITTENT EXPLOSIVE DISORDER
     Dosage: 150 MG QD PO INC. TO 300MG AFTER 1 WEEK QD PO
     Route: 048
     Dates: start: 20060926, end: 20061013

REACTIONS (2)
  - COMPLETED SUICIDE [None]
  - GUN SHOT WOUND [None]
